FAERS Safety Report 9668850 (Version 1)
Quarter: 2013Q4

REPORT INFORMATION
  Report Type: Spontaneous
  Country: US (occurrence: None)
  Receive Date: 20131104
  Receipt Date: 20131104
  Transmission Date: 20140711
  Serious: No
  Sender: FDA-Public Use
  Company Number: None

PATIENT
  Age: 36 Year
  Sex: Female

DRUGS (1)
  1. ZYRTEC [Suspect]
     Indication: SEASONAL ALLERGY
     Dates: start: 20130601, end: 20131101

REACTIONS (4)
  - Rash pruritic [None]
  - Exposure during pregnancy [None]
  - Dermatitis contact [None]
  - Drug withdrawal syndrome [None]
